FAERS Safety Report 6213902-0 (Version None)
Quarter: 2009Q2

REPORT INFORMATION
  Report Type: 
  Country: None (occurrence: None)
  Receive Date: 20090601
  Receipt Date: 20090601
  Transmission Date: 20091009
  Serious: Yes (Other)
  Sender: FDA-Public Use
  Company Number: None

PATIENT
  Age: 49 Year
  Sex: Female
  Weight: 70.3075 kg

DRUGS (1)
  1. TOPIRAMATE [Suspect]
     Indication: MIGRAINE
     Dosage: 3 TABLETS ONCE DAILY PO
     Route: 048
     Dates: start: 20090422, end: 20090528

REACTIONS (7)
  - ANGLE CLOSURE GLAUCOMA [None]
  - BLEPHAROSPASM [None]
  - EYE IRRITATION [None]
  - EYE PAIN [None]
  - MYOPIA [None]
  - OCULAR HYPERAEMIA [None]
  - VISION BLURRED [None]
